FAERS Safety Report 12789658 (Version 3)
Quarter: 2017Q1

REPORT INFORMATION
  Report Type: Spontaneous
  Country: US (occurrence: US)
  Receive Date: 20160928
  Receipt Date: 20170203
  Transmission Date: 20170428
  Serious: No
  Sender: FDA-Public Use
  Company Number: US-LUNDBECK-DKLU2019308

PATIENT
  Age: 86 Year
  Sex: Male

DRUGS (2)
  1. NORTHERA [Suspect]
     Active Substance: DROXIDOPA
     Route: 048
  2. NORTHERA [Suspect]
     Active Substance: DROXIDOPA
     Indication: AUTONOMIC FAILURE SYNDROME
     Dosage: SCHEDULE B (COMPLETE)
     Route: 065
     Dates: start: 20160910

REACTIONS (12)
  - Cold sweat [Unknown]
  - Restlessness [Unknown]
  - Activities of daily living impaired [Unknown]
  - Blood pressure decreased [Recovering/Resolving]
  - Somnolence [Unknown]
  - Joint swelling [Unknown]
  - Pallor [Unknown]
  - Asthenia [Unknown]
  - Asthenia [Unknown]
  - Fatigue [Unknown]
  - Nausea [Recovered/Resolved]
  - Headache [Recovered/Resolved]

NARRATIVE: CASE EVENT DATE: 20160912
